FAERS Safety Report 24464765 (Version 1)
Quarter: 2024Q4

REPORT INFORMATION
  Report Type: Report from Study
  Country: US (occurrence: US)
  Receive Date: 20241018
  Receipt Date: 20241018
  Transmission Date: 20250114
  Serious: No
  Sender: ROCHE
  Company Number: US-ROCHE-3509526

PATIENT
  Age: 60 Year
  Sex: Female

DRUGS (15)
  1. XOLAIR [Suspect]
     Active Substance: OMALIZUMAB
     Indication: Idiopathic urticaria
     Dosage: 90 DAYS SUPPLY, LAST DATE OF INJECTION: 12/FEB/2024
     Route: 058
  2. XOLAIR [Suspect]
     Active Substance: OMALIZUMAB
  3. HYDROCORTISONE [Concomitant]
     Active Substance: HYDROCORTISONE
  4. ESTRADIOL [Concomitant]
     Active Substance: ESTRADIOL
  5. HUMIRA [Concomitant]
     Active Substance: ADALIMUMAB
  6. LEVOTHYROXINE [Concomitant]
     Active Substance: LEVOTHYROXINE
  7. METHOTREXATE [Concomitant]
     Active Substance: METHOTREXATE
     Route: 065
  8. JUBLIA [Concomitant]
     Active Substance: EFINACONAZOLE
  9. ZORYVE [Concomitant]
     Active Substance: ROFLUMILAST
  10. CLOBETASOL [Concomitant]
     Active Substance: CLOBETASOL
  11. ENSTILAR [Concomitant]
     Active Substance: BETAMETHASONE DIPROPIONATE\CALCIPOTRIENE HYDRATE
  12. ESTROGENS, CONJUGATED\METHYLTESTOSTERONE [Concomitant]
     Active Substance: ESTROGENS, CONJUGATED\METHYLTESTOSTERONE
  13. LEXAPRO [Concomitant]
     Active Substance: ESCITALOPRAM OXALATE
  14. CETIRIZINE [Concomitant]
     Active Substance: CETIRIZINE HYDROCHLORIDE
  15. ZYRTEC [Concomitant]
     Active Substance: CETIRIZINE HYDROCHLORIDE

REACTIONS (2)
  - Off label use [Unknown]
  - No adverse event [Unknown]
